FAERS Safety Report 9376596 (Version 1)
Quarter: 2013Q3

REPORT INFORMATION
  Report Type: Report from Study
  Country: US (occurrence: US)
  Receive Date: 20130701
  Receipt Date: 20130701
  Transmission Date: 20140515
  Serious: Yes (Other)
  Sender: FDA-Public Use
  Company Number: US-ROCHE-1242579

PATIENT
  Sex: Male

DRUGS (3)
  1. AVASTIN [Suspect]
     Indication: NON-SMALL CELL LUNG CANCER
     Route: 042
     Dates: start: 20130401
  2. FENTANYL [Concomitant]
     Indication: ANALGESIC THERAPY
     Route: 065
  3. VICODIN [Concomitant]
     Indication: ANALGESIC THERAPY
     Route: 048

REACTIONS (5)
  - Bone cancer [Unknown]
  - Constipation [Not Recovered/Not Resolved]
  - Decreased appetite [Not Recovered/Not Resolved]
  - Urinary retention [Not Recovered/Not Resolved]
  - Back pain [Not Recovered/Not Resolved]
